FAERS Safety Report 23195650 (Version 1)
Quarter: 2023Q4

REPORT INFORMATION
  Report Type: Spontaneous
  Country: GB (occurrence: GB)
  Receive Date: 20231117
  Receipt Date: 20231117
  Transmission Date: 20240110
  Serious: Yes (Hospitalization, Other)
  Sender: FDA-Public Use
  Company Number: GB-Accord-390312

PATIENT
  Age: 36 Year
  Sex: Male

DRUGS (3)
  1. CISPLATIN [Suspect]
     Active Substance: CISPLATIN
     Indication: Central nervous system neoplasm
     Dosage: DOSAGES REDUCED TO 75% AND 60%
  2. ETOPOSIDE [Suspect]
     Active Substance: ETOPOSIDE
     Indication: Central nervous system neoplasm
     Dosage: DOSAGES REDUCED TO 75% AND 60%
  3. IFOSFAMIDE [Suspect]
     Active Substance: IFOSFAMIDE
     Indication: Central nervous system neoplasm
     Dosage: DOSAGES REDUCED TO 75% AND 60%

REACTIONS (5)
  - Meningitis pneumococcal [Unknown]
  - Myelosuppression [Unknown]
  - Nephropathy toxic [Unknown]
  - Ototoxicity [Unknown]
  - Off label use [Unknown]
